FAERS Safety Report 5382446-0 (Version None)
Quarter: 2007Q3

REPORT INFORMATION
  Report Type: 
  Country: None (occurrence: None)
  Receive Date: 20070705
  Receipt Date: 20070210
  Transmission Date: 20080115
  Serious: Yes (Hospitalization)
  Sender: FDA-Public Use
  Company Number: WAES 0702USA01520

PATIENT

DRUGS (2)
  1. HYZAAR [Suspect]
     Dosage: PO
     Route: 048
  2. COZAAR [Suspect]
     Dosage: PO
     Route: 048

REACTIONS (2)
  - OEDEMA [None]
  - SWELLING [None]
